FAERS Safety Report 7906426-3 (Version None)
Quarter: 2011Q4

REPORT INFORMATION
  Report Type: 
  Country: None (occurrence: None)
  Receive Date: 20111110
  Receipt Date: 20111106
  Transmission Date: 20120403
  Serious: Yes (Other)
  Sender: FDA-Public Use
  Company Number: US-SHIRE-ALL1-2011-04333

PATIENT
  Age: 12 Year
  Sex: Male
  Weight: 48.073 kg

DRUGS (3)
  1. INTUNIV [Suspect]
     Indication: PRODUCT USED FOR UNKNOWN INDICATION
     Dosage: 2 MG, 1X/DAY:QD
     Route: 048
     Dates: start: 20110901
  2. CONCERTA [Concomitant]
     Indication: ATTENTION DEFICIT/HYPERACTIVITY DISORDER
     Dosage: 36 MG, UNKNOWN
     Route: 048
  3. INTUNIV [Suspect]
     Dosage: 2 MG, 2X/DAY:BID (GIVEN ONE 2 MG TABLET IN THE AM AND ONE 2 MG TABLET IN THE PM)
     Route: 048
     Dates: start: 20111101, end: 20111101

REACTIONS (5)
  - SOMNOLENCE [None]
  - HYPERSOMNIA [None]
  - INAPPROPRIATE SCHEDULE OF DRUG ADMINISTRATION [None]
  - EPISTAXIS [None]
  - LOSS OF CONSCIOUSNESS [None]
